FAERS Safety Report 5579026-0 (Version None)
Quarter: 2007Q4

REPORT INFORMATION
  Report Type: 
  Country: None (occurrence: None)
  Receive Date: 20071227
  Receipt Date: 20071218
  Transmission Date: 20080405
  Serious: Yes (Death)
  Sender: FDA-Public Use
  Company Number: A-NJ2007-18458

PATIENT
  Age: 53 Year
  Sex: Female

DRUGS (2)
  1. VENTAVIS [Suspect]
     Indication: PULMONARY HYPERTENSION
     Dosage: RESPIRATORY
     Route: 055
     Dates: start: 20070611, end: 20070717
  2. TRACLEER [Concomitant]

REACTIONS (1)
  - DEATH [None]
